FAERS Safety Report 7313250-1 (Version None)
Quarter: 2011Q1

REPORT INFORMATION
  Report Type: 
  Country: None (occurrence: None)
  Receive Date: 20110216
  Receipt Date: 20110216
  Transmission Date: 20110831
  Serious: No
  Sender: FDA-Public Use
  Company Number: None

PATIENT
  Age: 21 Year
  Sex: Female
  Weight: 81.6475 kg

DRUGS (1)
  1. MIRENA [Suspect]

REACTIONS (7)
  - FALL [None]
  - FUNGAL INFECTION [None]
  - DIZZINESS [None]
  - MIGRAINE [None]
  - MOOD SWINGS [None]
  - DYSPAREUNIA [None]
  - LIBIDO DECREASED [None]
